FAERS Safety Report 8949558 (Version 5)
Quarter: 2013Q2

REPORT INFORMATION
  Report Type: Report from Study
  Country: KR (occurrence: KR)
  Receive Date: 20121206
  Receipt Date: 20130418
  Transmission Date: 20140414
  Serious: Yes (Hospitalization, Other)
  Sender: FDA-Public Use
  Company Number: KR-SANOFI-AVENTIS-2012SA087541

PATIENT
  Age: 53 Year
  Sex: Female
  Weight: 59.4 kg

DRUGS (14)
  1. DOCETAXEL [Suspect]
     Indication: HER-2 POSITIVE BREAST CANCER
     Dosage: FORM: VIALS?DOSE LEVEL: 75MG/M2
     Route: 042
     Dates: start: 20091112
  2. DOCETAXEL [Suspect]
     Indication: HER-2 POSITIVE BREAST CANCER
     Dosage: FORM: VIALS?DOSE LEVEL: 75MG/M2
     Route: 042
     Dates: start: 20091112
  3. CARBOPLATIN [Suspect]
     Indication: HER-2 POSITIVE BREAST CANCER
     Dosage: FORM: VIALS?DOSE LEVEL: 6AUC
     Route: 042
     Dates: start: 20091112
  4. TRASTUZUMAB [Suspect]
     Indication: HER-2 POSITIVE BREAST CANCER
     Dosage: FORM: VIALS?DOSE LEVEL: 6MG/KG
     Route: 042
     Dates: start: 20091112
  5. BEVACIZUMAB [Suspect]
     Indication: HER-2 POSITIVE BREAST CANCER
     Dosage: FORM: VIALS?DOSE LEVEL: 15MG/KG
     Route: 042
     Dates: start: 20091112
  6. AMARYL [Concomitant]
     Dates: start: 2001
  7. DICHLOZID [Concomitant]
     Dates: start: 2003
  8. APROVEL [Concomitant]
     Dates: start: 2003
  9. GLUCOBAY [Concomitant]
     Dates: start: 20091204
  10. DIABEX [Concomitant]
     Dates: start: 2001
  11. ZOFRAN [Concomitant]
     Dates: start: 20091224, end: 20091227
  12. AMINO ACIDS [Concomitant]
  13. ZOLPIDEM [Concomitant]
     Dates: start: 20091226, end: 20100106
  14. ULTRACET [Concomitant]
     Dates: start: 20091226, end: 20100101

REACTIONS (3)
  - Vomiting [Recovered/Resolved]
  - Weight decreased [Recovered/Resolved]
  - Depression [Recovering/Resolving]
